FAERS Safety Report 8729738 (Version 2)
Quarter: 2015Q3

REPORT INFORMATION
  Report Type: Report from Study
  Country: US (occurrence: US)
  Receive Date: 20120912
  Receipt Date: 20150714
  Transmission Date: 20151125
  Serious: Yes (Death, Other)
  Sender: FDA-Public Use
  Company Number: US-ROCHE-1099908

PATIENT
  Sex: Female

DRUGS (18)
  1. ACTIVASE [Suspect]
     Active Substance: ALTEPLASE
     Indication: PULMONARY EMBOLISM
     Dosage: 2 X 50 MG
     Route: 065
  2. DIAZEPAM. [Concomitant]
     Active Substance: DIAZEPAM
     Route: 030
  3. FUROSEMIDE. [Concomitant]
     Active Substance: FUROSEMIDE
     Dosage: 10 MG/ML
     Route: 065
  4. NIFEDIPINE. [Concomitant]
     Active Substance: NIFEDIPINE
     Route: 030
  5. LIDOCAINE. [Concomitant]
     Active Substance: LIDOCAINE
  6. SUCCINYL CHOLINE [Concomitant]
     Active Substance: SUCCINYLCHOLINE
     Route: 065
  7. HEPARIN [Concomitant]
     Active Substance: HEPARIN SODIUM
     Route: 065
  8. METHYLPREDNISOLONE. [Concomitant]
     Active Substance: METHYLPREDNISOLONE
     Route: 042
  9. NALOXONE [Concomitant]
     Active Substance: NALOXONE
     Route: 065
  10. AZTREONAM. [Concomitant]
     Active Substance: AZTREONAM
     Route: 042
  11. DOBUTAMINE [Concomitant]
     Active Substance: DOBUTAMINE\DOBUTAMINE HYDROCHLORIDE
     Route: 042
  12. MIDAZOLAM HYDROCHLORIDE. [Concomitant]
     Active Substance: MIDAZOLAM HYDROCHLORIDE
     Dosage: 5 MG/ML
     Route: 065
  13. METRONIDAZOLE. [Concomitant]
     Active Substance: METRONIDAZOLE
     Route: 042
  14. HYDROMORPHONE [Concomitant]
     Active Substance: HYDROMORPHONE
     Route: 030
  15. CEFAZOLIN [Concomitant]
     Active Substance: CEFAZOLIN
     Route: 030
  16. RANITIDINE [Concomitant]
     Active Substance: RANITIDINE\RANITIDINE HYDROCHLORIDE
     Route: 065
  17. AMINOPHYLLINE. [Concomitant]
     Active Substance: AMINOPHYLLINE
     Route: 042
  18. CHLORPROMAZINE. [Concomitant]
     Active Substance: CHLORPROMAZINE

REACTIONS (8)
  - Hypoxia [Fatal]
  - Pneumothorax [Fatal]
  - Acute respiratory distress syndrome [Fatal]
  - Generalised oedema [Fatal]
  - Multi-organ failure [Fatal]
  - Cardiac arrest [Fatal]
  - Renal failure [Fatal]
  - Hypercapnia [Fatal]
